FAERS Safety Report 5019702-1 (Version None)
Quarter: 2006Q2

REPORT INFORMATION
  Report Type: 
  Country: None (occurrence: None)
  Receive Date: 20060531
  Receipt Date: 20060522
  Transmission Date: 20061013
  Serious: Yes (Other)
  Sender: FDA-Public Use
  Company Number: 200610836BCC

PATIENT
  Age: 19 Year
  Sex: Female
  Weight: 74.8435 kg

DRUGS (1)
  1. ALEVE [Suspect]
     Indication: HEADACHE
     Dosage: 440 MG, IRR, ORAL
     Route: 048
     Dates: start: 20060222

REACTIONS (2)
  - INCOHERENT [None]
  - SOMNOLENCE [None]
